FAERS Safety Report 4313128-1 (Version None)
Quarter: 2004Q1

REPORT INFORMATION
  Report Type: 
  Country: None (occurrence: None)
  Receive Date: 20040304
  Receipt Date: 20040213
  Transmission Date: 20041129
  Serious: Yes (Other)
  Sender: FDA-Public Use
  Company Number: EWC011028613

PATIENT
  Age: 60 Year
  Sex: Female
  Weight: 54 kg

DRUGS (5)
  1. OLANZAPINE [Suspect]
     Indication: SCHIZOPHRENIA
     Dosage: 5 MG/DAY
     Dates: start: 20010401, end: 20010501
  2. LITHIUM [Concomitant]
  3. VALPROATE SODIUM [Concomitant]
  4. LORAZEPAM [Concomitant]
  5. PROPRANOLOL [Concomitant]

REACTIONS (10)
  - AGGRESSION [None]
  - BLOOD CHOLESTEROL INCREASED [None]
  - BLOOD GLUCOSE INCREASED [None]
  - BLOOD TRIGLYCERIDES INCREASED [None]
  - ELECTROCARDIOGRAM QT CORRECTED INTERVAL PROLONGED [None]
  - GRANDIOSITY [None]
  - HIGH DENSITY LIPOPROTEIN DECREASED [None]
  - PERSECUTORY DELUSION [None]
  - URINE ANALYSIS ABNORMAL [None]
  - WHITE BLOOD CELLS URINE POSITIVE [None]
